FAERS Safety Report 10638338 (Version 2)
Quarter: 2015Q1

REPORT INFORMATION
  Report Type: Spontaneous
  Country: US (occurrence: None)
  Receive Date: 20141204
  Receipt Date: 20150303
  Transmission Date: 20150720
  Serious: Yes (Hospitalization)
  Sender: FDA-Public Use
  Company Number: 201411131

PATIENT
  Age: 70 Year
  Sex: Male
  Weight: 79.38 kg

DRUGS (15)
  1. EFFEXOR XR (VENLAFAXINE HYDORCHLORIDE) [Concomitant]
  2. ABILIFY [Concomitant]
     Active Substance: ARIPIPRAZOLE
  3. PLAVIX (CLOPIDOGREL BISULFATE) [Concomitant]
  4. TESTIM [Suspect]
     Active Substance: TESTOSTERONE
     Indication: HYPOGONADISM
     Dosage: DAILY, 2 IN 1 D, TRANSDERMAL?
     Route: 062
     Dates: start: 200910, end: 201108
  5. LEVOTHYROXINE [Concomitant]
     Active Substance: LEVOTHYROXINE
  6. ECOTRIN [Concomitant]
     Active Substance: ASPIRIN
  7. TRICOR [Concomitant]
     Active Substance: FENOFIBRATE
  8. NEXIUM [Concomitant]
     Active Substance: ESOMEPRAZOLE MAGNESIUM
  9. NITROGLYCERINE (GLYCERYL TRINITRATE) [Concomitant]
  10. TESTIM [Suspect]
     Active Substance: TESTOSTERONE
     Indication: BLOOD TESTOSTERONE DECREASED
     Dosage: DAILY, 2 IN 1 D, TRANSDERMAL?
     Route: 062
     Dates: start: 200910, end: 201108
  11. CADUET (AMLODIPINE BESILATE, ATORVASTATIN CALCIUM) [Concomitant]
  12. VIAGRA [Concomitant]
     Active Substance: SILDENAFIL CITRATE
  13. LOVAZA [Concomitant]
     Active Substance: OMEGA-3-ACID ETHYL ESTERS
  14. VITAMINS NOS [Concomitant]
     Active Substance: VITAMINS
  15. VITAMIN B12 (VITAMIN B NOS) [Concomitant]

REACTIONS (9)
  - Coronary artery stenosis [None]
  - Condition aggravated [None]
  - Coronary artery restenosis [None]
  - Pain [None]
  - Economic problem [None]
  - Myocardial infarction [None]
  - Injury [None]
  - Emotional disorder [None]
  - Medical diet [None]

NARRATIVE: CASE EVENT DATE: 20101121
